FAERS Safety Report 9887906 (Version 1)
Quarter: 2014Q1

REPORT INFORMATION
  Report Type: Spontaneous
  Country: EG (occurrence: EG)
  Receive Date: 20140211
  Receipt Date: 20140211
  Transmission Date: 20141002
  Serious: Yes (Other)
  Sender: FDA-Public Use
  Company Number: EG-ASTELLAS-2014EU001021

PATIENT
  Age: 14 Month
  Sex: Female

DRUGS (5)
  1. TACROLIMUS SYSTEMIC [Suspect]
     Indication: IMMUNOSUPPRESSION
     Dosage: 0.5 MG, BID
     Route: 065
  2. METHYLPREDNISOLONE [Suspect]
     Indication: IMMUNOSUPPRESSION
     Dosage: 1 MG/KG, UNKNOWN/D
     Route: 042
  3. METHYLPREDNISOLONE [Suspect]
     Dosage: 0.5 MG/KG, UNKNOWN/D
     Route: 042
  4. PREDNISONE [Suspect]
     Indication: IMMUNOSUPPRESSION
     Dosage: 0.3 MG/KG, UNKNOWN/D
     Route: 065
  5. PREDNISONE [Suspect]
     Dosage: 0.1 MG/KG, UNKNOWN/D
     Route: 048

REACTIONS (1)
  - Pneumatosis intestinalis [Recovered/Resolved]
